FAERS Safety Report 5798083-X (Version None)
Quarter: 2008Q3

REPORT INFORMATION
  Report Type: 
  Country: None (occurrence: None)
  Receive Date: 20080702
  Receipt Date: 20080624
  Transmission Date: 20090109
  Serious: Yes (Other)
  Sender: FDA-Public Use
  Company Number: US-ROCHE-572342

PATIENT
  Sex: Female
  Weight: 47.2 kg

DRUGS (6)
  1. BONIVA [Suspect]
     Indication: OSTEOPOROSIS
     Dosage: DOSAGE: 1 INJECTION PER 3 MONTHS
     Route: 042
     Dates: start: 20070401, end: 20080418
  2. FUROSEMIDE [Concomitant]
  3. DIAZEPAM [Concomitant]
  4. ALLEGRA [Concomitant]
  5. BENADRYL [Concomitant]
  6. FLONASE [Concomitant]

REACTIONS (1)
  - THROMBOSIS [None]
